FAERS Safety Report 12861813 (Version 1)
Quarter: 2016Q4

REPORT INFORMATION
  Report Type: Report from Study
  Country: IT (occurrence: IT)
  Receive Date: 20161019
  Receipt Date: 20161019
  Transmission Date: 20170207
  Serious: Yes (Other)
  Sender: FDA-Public Use
  Company Number: IT-VIIV HEALTHCARE LIMITED-IT2016GSK152980

PATIENT

DRUGS (1)
  1. MARAVIROC [Suspect]
     Active Substance: MARAVIROC
     Indication: PROGRESSIVE MULTIFOCAL LEUKOENCEPHALOPATHY

REACTIONS (2)
  - Progressive multifocal leukoencephalopathy [Unknown]
  - Condition aggravated [Unknown]
